FAERS Safety Report 8778987 (Version 1)
Quarter: 2012Q4

REPORT INFORMATION
  Report Type: 
  Country: US (occurrence: US)
  Receive Date: 20120912
  Receipt Date: 20120912
  Transmission Date: 20130627
  Serious: Yes (Other)
  Sender: FDA-Public Use
  Company Number: US-PFIZER INC-2012220699

PATIENT
  Sex: Female

DRUGS (6)
  1. NEURONTIN [Suspect]
     Indication: NERVE INJURY
     Dosage: 300 mg, 3x/day
     Route: 048
     Dates: start: 2008, end: 2009
  2. NEURONTIN [Suspect]
     Dosage: 400 mg, 3x/day
     Route: 048
     Dates: start: 2009, end: 201011
  3. NEURONTIN [Suspect]
     Indication: NERVE INJURY
     Dosage: 600 mg, 3x/day
     Route: 048
     Dates: start: 201011
  4. BACLOFEN [Concomitant]
     Indication: MUSCLE SPASMS
     Dosage: 10 mg, 1x/day
  5. VICODIN [Concomitant]
     Dosage: UNK
  6. LORAZEPAM [Concomitant]
     Indication: ANXIETY
     Dosage: UNK

REACTIONS (6)
  - Ovarian cancer [Not Recovered/Not Resolved]
  - Ovarian mass [Not Recovered/Not Resolved]
  - Adrenal mass [Not Recovered/Not Resolved]
  - Vertebral column mass [Not Recovered/Not Resolved]
  - Feeling abnormal [Unknown]
  - Drug ineffective [Unknown]
